FAERS Safety Report 9354184 (Version 3)
Quarter: 2013Q3

REPORT INFORMATION
  Report Type: Report from Study
  Country: JP (occurrence: JP)
  Receive Date: 20130618
  Receipt Date: 20130829
  Transmission Date: 20140515
  Serious: Yes (Hospitalization)
  Sender: FDA-Public Use
  Company Number: JP-GLAXOSMITHKLINE-B0899709A

PATIENT
  Age: 76 Year
  Sex: Male
  Weight: 77 kg

DRUGS (15)
  1. REVOLADE [Suspect]
     Indication: IMMUNE THROMBOCYTOPENIC PURPURA
     Route: 048
     Dates: start: 20110801, end: 20110904
  2. REVOLADE [Suspect]
     Indication: IMMUNE THROMBOCYTOPENIC PURPURA
     Route: 048
     Dates: start: 20110905, end: 20111128
  3. REVOLADE [Suspect]
     Indication: IMMUNE THROMBOCYTOPENIC PURPURA
     Route: 048
     Dates: start: 20120116
  4. ZYLORIC [Concomitant]
     Route: 048
  5. URALYT [Concomitant]
     Route: 048
  6. BLOPRESS [Concomitant]
     Route: 048
  7. ADALAT-CR [Concomitant]
     Route: 048
  8. ISALON [Concomitant]
     Route: 048
  9. MAGNESIUM OXIDE [Concomitant]
     Route: 048
  10. ADONA (AC-17) [Concomitant]
     Route: 048
     Dates: end: 20110823
  11. ASVERIN [Concomitant]
     Route: 048
  12. MUCODYNE [Concomitant]
     Route: 048
  13. JANUVIA [Concomitant]
     Route: 048
     Dates: start: 20111031, end: 20111128
  14. LIVALO [Concomitant]
     Route: 048
     Dates: start: 20111003, end: 20111128
  15. SEIBULE [Concomitant]
     Route: 048
     Dates: start: 20111128

REACTIONS (2)
  - Cerebral infarction [Recovering/Resolving]
  - Liver disorder [Unknown]
